FAERS Safety Report 17887666 (Version 1)
Quarter: 2020Q2

REPORT INFORMATION
  Report Type: Spontaneous
  Country: JP (occurrence: JP)
  Receive Date: 20200611
  Receipt Date: 20200611
  Transmission Date: 20200714
  Serious: Yes (Other)
  Sender: FDA-Public Use
  Company Number: JP-UCBSA-2020023319

PATIENT
  Age: 76 Year
  Sex: Female

DRUGS (10)
  1. RENIVACE [Concomitant]
     Active Substance: ENALAPRIL
     Indication: PRODUCT USED FOR UNKNOWN INDICATION
  2. AZULFIDINE EN-TABS [Concomitant]
     Active Substance: SULFASALAZINE
     Indication: PRODUCT USED FOR UNKNOWN INDICATION
  3. PRAVASTATIN NA [Concomitant]
     Active Substance: PRAVASTATIN SODIUM
     Indication: PRODUCT USED FOR UNKNOWN INDICATION
  4. DEBERZA [Concomitant]
     Active Substance: TOFOGLIFLOZIN
     Indication: PRODUCT USED FOR UNKNOWN INDICATION
  5. ALENDRONATE [Concomitant]
     Active Substance: ALENDRONATE SODIUM
     Indication: PRODUCT USED FOR UNKNOWN INDICATION
  6. CELECOX [Concomitant]
     Active Substance: CELECOXIB
     Indication: PRODUCT USED FOR UNKNOWN INDICATION
  7. CALFINA [ALFACALCIDOL] [Concomitant]
     Active Substance: ALFACALCIDOL
     Indication: PRODUCT USED FOR UNKNOWN INDICATION
  8. ACTOS [Concomitant]
     Active Substance: PIOGLITAZONE HYDROCHLORIDE
     Indication: PRODUCT USED FOR UNKNOWN INDICATION
  9. CIMZIA [Suspect]
     Active Substance: CERTOLIZUMAB PEGOL
     Indication: RHEUMATOID ARTHRITIS
     Dosage: 200 MILLIGRAM, EV 2 WEEKS(QOW)
     Route: 058
     Dates: start: 20191224, end: 20200217
  10. TAKEPRON [Concomitant]
     Active Substance: LANSOPRAZOLE
     Indication: PRODUCT USED FOR UNKNOWN INDICATION

REACTIONS (1)
  - Rash [Unknown]

NARRATIVE: CASE EVENT DATE: 20200204
